FAERS Safety Report 7405111-4 (Version None)
Quarter: 2011Q1

REPORT INFORMATION
  Report Type: 
  Country: None (occurrence: None)
  Receive Date: 20110331
  Receipt Date: 20110318
  Transmission Date: 20110831
  Serious: Yes (Disabling)
  Sender: FDA-Public Use
  Company Number: 2010AL002645

PATIENT
  Sex: Male

DRUGS (1)
  1. METOCLOPRAMIDE [Suspect]
     Dosage: PO
     Route: 048
     Dates: start: 19970101

REACTIONS (33)
  - NERVOUS SYSTEM DISORDER [None]
  - ACTIVITIES OF DAILY LIVING IMPAIRED [None]
  - EMOTIONAL DISTRESS [None]
  - HEADACHE [None]
  - PHOTOSENSITIVITY REACTION [None]
  - CONFUSIONAL STATE [None]
  - INTENTIONAL DRUG MISUSE [None]
  - ECONOMIC PROBLEM [None]
  - MENTAL DISORDER [None]
  - GASTROOESOPHAGEAL REFLUX DISEASE [None]
  - TREMOR [None]
  - EXTRAPYRAMIDAL DISORDER [None]
  - DYSKINESIA [None]
  - DEPRESSION [None]
  - NAUSEA [None]
  - VITAMIN D DECREASED [None]
  - INJURY [None]
  - DEFORMITY [None]
  - CHILLS [None]
  - BLOOD ALKALINE PHOSPHATASE INCREASED [None]
  - ALANINE AMINOTRANSFERASE DECREASED [None]
  - ASTHMA [None]
  - VOMITING [None]
  - ENURESIS [None]
  - DISTURBANCE IN ATTENTION [None]
  - CONVULSION [None]
  - MYOCLONUS [None]
  - HYPERREFLEXIA [None]
  - PAIN [None]
  - DIZZINESS [None]
  - PHOTOPHOBIA [None]
  - INCONTINENCE [None]
  - MIGRAINE [None]
